FAERS Safety Report 19468805 (Version 1)
Quarter: 2021Q2

REPORT INFORMATION
  Report Type: Report from Study
  Country: SG (occurrence: SG)
  Receive Date: 20210628
  Receipt Date: 20210628
  Transmission Date: 20210717
  Serious: Yes (Other)
  Sender: FDA-Public Use
  Company Number: NVSC2021SG138784

PATIENT
  Age: 70 Year
  Sex: Male

DRUGS (2)
  1. INC280 [Suspect]
     Active Substance: CAPMATINIB
     Dosage: 200 MG, BID
     Route: 065
  2. INC280 [Suspect]
     Active Substance: CAPMATINIB
     Indication: ADENOCARCINOMA
     Dosage: 400 MG, BID
     Route: 065

REACTIONS (1)
  - Transaminases increased [Unknown]
